FAERS Safety Report 11509779 (Version 1)
Quarter: 2015Q3

REPORT INFORMATION
  Report Type: Spontaneous
  Country: US (occurrence: US)
  Receive Date: 20150915
  Receipt Date: 20150915
  Transmission Date: 20151125
  Serious: No
  Sender: FDA-Public Use
  Company Number: US-JNJFOC-20150709889

PATIENT
  Age: 60 Year
  Sex: Female
  Weight: 72.58 kg

DRUGS (2)
  1. TYLENOL REGULAR STRENGTH [Suspect]
     Active Substance: ACETAMINOPHEN
     Indication: ANALGESIC THERAPY
     Route: 048
     Dates: start: 20150711, end: 20150711
  2. BUFFERIN [Concomitant]
     Active Substance: ASPIRIN
     Indication: MIGRAINE
     Route: 065

REACTIONS (7)
  - Choking sensation [Recovering/Resolving]
  - Oropharyngeal pain [Unknown]
  - Cough [Unknown]
  - Paraesthesia [Unknown]
  - Hypersensitivity [Unknown]
  - Throat irritation [Unknown]
  - Nausea [Unknown]

NARRATIVE: CASE EVENT DATE: 20150711
